FAERS Safety Report 5837035-8 (Version None)
Quarter: 2008Q3

REPORT INFORMATION
  Report Type: 
  Country: None (occurrence: None)
  Receive Date: 20080807
  Receipt Date: 20080506
  Transmission Date: 20090109
  Serious: No
  Sender: FDA-Public Use
  Company Number: US-BRISTOL-MYERS SQUIBB COMPANY-14090781

PATIENT
  Age: 78 Year
  Sex: Female
  Weight: 72 kg

DRUGS (15)
  1. GLUCOPHAGE [Suspect]
     Indication: DIABETES MELLITUS
     Dosage: TAKING GLUCOPHAGE FOR 18 YEARS AND FOR THE PAST 10 YEARS THE DOSE WAS 1000MG TWICE PER DAY.
     Dates: start: 20080117, end: 20080122
  2. GLYBURIDE AND METFORMIN HCL [Suspect]
     Indication: DIABETES MELLITUS
     Dosage: 1 DOSAGE FORM =1000MG/5MG
  3. DIABETA [Suspect]
     Indication: TYPE 2 DIABETES MELLITUS
     Dates: start: 19880101, end: 20080120
  4. DIOVAN [Concomitant]
  5. VERAPAMIL [Concomitant]
  6. LIPITOR [Concomitant]
  7. ASCORBIC ACID [Concomitant]
  8. RETINOL [Concomitant]
  9. ZINC [Concomitant]
  10. CALCIUM [Concomitant]
  11. VITAMINS NOS [Concomitant]
  12. MINERAL TAB [Concomitant]
  13. VITAMIN B [Concomitant]
  14. CENTRUM SILVER [Concomitant]
  15. TOCOPHEROL ACETATE [Concomitant]

REACTIONS (6)
  - DIZZINESS [None]
  - FEELING ABNORMAL [None]
  - HEADACHE [None]
  - NAUSEA [None]
  - PALPITATIONS [None]
  - PRURITUS GENERALISED [None]
